FAERS Safety Report 8478211-8 (Version None)
Quarter: 2012Q2

REPORT INFORMATION
  Report Type: 
  Country: None (occurrence: None)
  Receive Date: 20120629
  Receipt Date: 20120627
  Transmission Date: 20120825
  Serious: Yes (Other)
  Sender: FDA-Public Use
  Company Number: PHHY2012AR055408

PATIENT
  Sex: Male

DRUGS (3)
  1. TRILEPTAL [Suspect]
     Dosage: 300 MG, TID
     Dates: start: 20120617
  2. PHENYTOIN SODIUM CAP [Concomitant]
  3. TRILEPTAL [Suspect]
     Indication: PETIT MAL EPILEPSY
     Dosage: 300 MG DAILY
     Dates: start: 20120101

REACTIONS (3)
  - RADIUS FRACTURE [None]
  - TIBIA FRACTURE [None]
  - CONVULSION [None]
